FAERS Safety Report 8365421-3 (Version None)
Quarter: 2012Q2

REPORT INFORMATION
  Report Type: 
  Country: None (occurrence: None)
  Receive Date: 20120516
  Receipt Date: 20120503
  Transmission Date: 20120825
  Serious: No
  Sender: FDA-Public Use
  Company Number: US-ASTRAZENECA-2012SE28798

PATIENT
  Age: 68 Year
  Sex: Male
  Weight: 79.4 kg

DRUGS (3)
  1. NEXIUM [Suspect]
     Route: 048
  2. NEXIUM [Suspect]
     Indication: GASTROOESOPHAGEAL REFLUX DISEASE
     Route: 048
  3. LASOPRAZOLE [Concomitant]

REACTIONS (7)
  - MALAISE [None]
  - FLATULENCE [None]
  - DIARRHOEA [None]
  - HYPERCHLORHYDRIA [None]
  - NAUSEA [None]
  - FEELING ABNORMAL [None]
  - DIZZINESS [None]
